FAERS Safety Report 16090465 (Version 1)
Quarter: 2019Q1

REPORT INFORMATION
  Report Type: Report from Study
  Country: IT (occurrence: IT)
  Receive Date: 20190319
  Receipt Date: 20190319
  Transmission Date: 20190418
  Serious: Yes (Hospitalization)
  Sender: FDA-Public Use
  Company Number: IT-MYLANLABS-2019M1024112

PATIENT
  Age: 86 Year
  Sex: Female

DRUGS (1)
  1. METFORMIN [Suspect]
     Active Substance: METFORMIN HYDROCHLORIDE
     Indication: DIABETES MELLITUS
     Dosage: 750 MILLIGRAM, QD
     Route: 048

REACTIONS (5)
  - Drug level increased [Recovering/Resolving]
  - Anuria [Recovering/Resolving]
  - Blood creatinine increased [Recovering/Resolving]
  - Diarrhoea [Recovering/Resolving]
  - Metabolic acidosis [Recovering/Resolving]

NARRATIVE: CASE EVENT DATE: 20180816
